FAERS Safety Report 8919799 (Version 3)
Quarter: 2013Q2

REPORT INFORMATION
  Report Type: Spontaneous
  Country: IT (occurrence: IT)
  Receive Date: 20121121
  Receipt Date: 20130620
  Transmission Date: 20140414
  Serious: Yes (Death, Hospitalization, Other)
  Sender: FDA-Public Use
  Company Number: IT-ELI_LILLY_AND_COMPANY-IT201211002695

PATIENT
  Age: 83 Year
  Sex: Male

DRUGS (14)
  1. ZYPREXA [Suspect]
     Indication: ABNORMAL BEHAVIOUR
     Dosage: 5 MG, UNKNOWN
     Dates: start: 20120601, end: 20120630
  2. OLANZAPINE [Suspect]
     Dosage: 5 MG, QD
     Route: 048
     Dates: start: 20121001
  3. DEPAKIN [Concomitant]
     Dosage: 0.5 DF, BID
  4. CLOPIDOGREL BESYLATE [Concomitant]
     Dosage: 75 MG, UNK
  5. CARDIOASPIRIN [Concomitant]
     Dosage: 100 MG, UNK
  6. ROSUVASTATIN CALCIUM [Concomitant]
     Dosage: 40 MG, UNK
  7. ROSUVASTATIN CALCIUM [Concomitant]
     Dosage: 10 MG, UNK
  8. LANSOPRAZOLE [Concomitant]
     Dosage: 30 MG, UNK
  9. ESOMEPRAZOLE MAGNESIUM [Concomitant]
  10. ENALAPRIL [Concomitant]
  11. EBIXA [Concomitant]
     Dosage: 10 MG, UNK
     Dates: start: 201208
  12. TALOFEN [Concomitant]
     Dosage: 15 GTT, EACH MORNING
  13. TALOFEN [Concomitant]
     Dosage: 20 GTT, EACH EVENING
  14. LUMIGAN [Concomitant]
     Dosage: 1 GTT, BID

REACTIONS (2)
  - Myocardial infarction [Fatal]
  - Acute myocardial infarction [Unknown]
